FAERS Safety Report 25174607 (Version 1)
Quarter: 2025Q2

REPORT INFORMATION
  Report Type: Spontaneous
  Country: US (occurrence: US)
  Receive Date: 20250408
  Receipt Date: 20250408
  Transmission Date: 20250716
  Serious: No
  Sender: FERRING
  Company Number: US-FERRINGPH-2025FE00735

PATIENT
  Age: 63 Year
  Sex: Male

DRUGS (1)
  1. FIRMAGON [Suspect]
     Active Substance: DEGARELIX ACETATE
     Indication: Product used for unknown indication
     Route: 065
     Dates: start: 20250213, end: 20250213

REACTIONS (2)
  - Injection site erythema [Unknown]
  - Product administration error [Unknown]

NARRATIVE: CASE EVENT DATE: 20250213
